FAERS Safety Report 12565853 (Version 2)
Quarter: 2016Q3

REPORT INFORMATION
  Report Type: Spontaneous
  Country: FR (occurrence: FR)
  Receive Date: 20160718
  Receipt Date: 20160915
  Transmission Date: 20161109
  Serious: Yes (Hospitalization)
  Sender: FDA-Public Use
  Company Number: FR-PFIZER INC-2016339050

PATIENT
  Age: 73 Year
  Sex: Female

DRUGS (16)
  1. KARDEGIC [Concomitant]
     Active Substance: ASPIRIN LYSINE
     Dosage: 75 MG, DAILY
     Route: 048
  2. ARANESP [Concomitant]
     Active Substance: DARBEPOETIN ALFA
     Dosage: EVERY 21 DAYS
     Dates: end: 201605
  3. CANDESARTAN [Concomitant]
     Active Substance: CANDESARTAN
     Indication: HYPERTENSION
     Dosage: 4 MG, 1X/DAY (IN THE MORNING)
     Route: 048
  4. DUROGESIC [Interacting]
     Active Substance: FENTANYL
     Indication: BACK PAIN
     Dosage: ONE DOSAGE FORM EACH 72 HOURS
     Route: 062
     Dates: end: 20160510
  5. AREDIA [Concomitant]
     Active Substance: PAMIDRONATE DISODIUM
     Dosage: 30 MG, MONTHLY
     Route: 042
     Dates: start: 20160519
  6. PARACETAMOL [Concomitant]
     Active Substance: ACETAMINOPHEN
     Dosage: 1 G, 3X/DAY
  7. REVLIMID [Concomitant]
     Active Substance: LENALIDOMIDE
     Indication: PLASMA CELL MYELOMA
     Dosage: 10 MG, DAILY
     Route: 048
     Dates: start: 2013, end: 20160427
  8. DUPHALAC [Concomitant]
     Active Substance: LACTULOSE
     Dosage: 10 MG, 1X/DAY (IN THE MORNING)
  9. OXYNORM [Interacting]
     Active Substance: OXYCODONE HYDROCHLORIDE
     Indication: BACK PAIN
     Dosage: 10 MG, 2X/DAY (ONE IN THE MORNING, ONE IN THE EVENING)
     Dates: end: 20160510
  10. NORSET [Interacting]
     Active Substance: MIRTAZAPINE
     Indication: DEPRESSION
     Dosage: 30 MG (15MG X2), 1X/DAY (IN THE EVENING)
     Route: 048
  11. INNOHEP [Concomitant]
     Active Substance: TINZAPARIN SODIUM
     Dosage: 14000 IU, DAILY
     Route: 058
  12. NEODEX /00016001/ [Concomitant]
     Active Substance: DEXAMETHASONE
     Dosage: 40 MG, WEEKLY
  13. ENDOXAN /00021101/ [Concomitant]
     Active Substance: CYCLOPHOSPHAMIDE
     Dosage: 350 MG, WEEKLY
     Dates: start: 20160412, end: 20160426
  14. ENDOXAN /00021101/ [Concomitant]
     Active Substance: CYCLOPHOSPHAMIDE
     Dosage: 350 MG, WEEKLY
     Dates: start: 20160510, end: 20160524
  15. XANAX [Suspect]
     Active Substance: ALPRAZOLAM
     Indication: DEPRESSION
     Dosage: 0.125 MG, 2X/DAY
     Route: 048
  16. REVLIMID [Concomitant]
     Active Substance: LENALIDOMIDE
     Dosage: 10 MG, DAILY
     Route: 048
     Dates: start: 20160505, end: 20160525

REACTIONS (3)
  - Confusional state [Recovered/Resolved]
  - Pyrexia [Unknown]
  - Drug interaction [Recovered/Resolved]

NARRATIVE: CASE EVENT DATE: 20160510
